FAERS Safety Report 5587066-0 (Version None)
Quarter: 2008Q1

REPORT INFORMATION
  Report Type: 
  Country: None (occurrence: None)
  Receive Date: 20080110
  Receipt Date: 20080103
  Transmission Date: 20080703
  Serious: Yes (Other)
  Sender: FDA-Public Use
  Company Number: B0361267A

PATIENT
  Age: 21 Year
  Sex: Female

DRUGS (3)
  1. PAROXETINE HYDROCHLORIDE [Suspect]
     Indication: DEPRESSION
     Route: 065
     Dates: start: 20020625
  2. TRAZODONE HCL [Concomitant]
     Dates: start: 20000725
  3. AMITRIPTYLINE HCL [Concomitant]
     Dates: start: 20010524

REACTIONS (7)
  - ANXIETY [None]
  - DRUG WITHDRAWAL SYNDROME [None]
  - FEAR [None]
  - GASTROINTESTINAL DISORDER [None]
  - HALLUCINATION [None]
  - MOOD SWINGS [None]
  - NIGHTMARE [None]
